FAERS Safety Report 12698777 (Version 2)
Quarter: 2016Q3

REPORT INFORMATION
  Report Type: Report from Study
  Country: DE (occurrence: KR)
  Receive Date: 20160830
  Receipt Date: 20160906
  Transmission Date: 20161109
  Serious: Yes (Death, Hospitalization)
  Sender: FDA-Public Use
  Company Number: DE-ACTELION-A-US2016-141526

PATIENT
  Age: 56 Year
  Sex: Female

DRUGS (4)
  1. TRACLEER [Concomitant]
     Active Substance: BOSENTAN
     Indication: PULMONARY ARTERIAL HYPERTENSION
  2. VENTAVIS [Suspect]
     Active Substance: ILOPROST
     Indication: PULMONARY ARTERIAL HYPERTENSION
     Dosage: UNK, 6X/DAY
     Route: 055
     Dates: start: 20160718, end: 20160725
  3. WARFARIN [Concomitant]
     Active Substance: WARFARIN
  4. FURIX [Concomitant]
     Active Substance: FUROSEMIDE

REACTIONS (8)
  - Fall [Unknown]
  - Death [Fatal]
  - Asthenia [Unknown]
  - Fatigue [Unknown]
  - Product use issue [Unknown]
  - Dizziness [Unknown]
  - Neck pain [Unknown]
  - Back pain [Unknown]

NARRATIVE: CASE EVENT DATE: 201607
